FAERS Safety Report 14171053 (Version 3)
Quarter: 2017Q4

REPORT INFORMATION
  Report Type: Spontaneous
  Country: CA (occurrence: CA)
  Receive Date: 20171108
  Receipt Date: 20171123
  Transmission Date: 20180321
  Serious: Yes (Hospitalization, Other)
  Sender: FDA-Public Use
  Company Number: CA-ASTRAZENECA-2017SF13013

PATIENT
  Age: 55 Year
  Sex: Male

DRUGS (6)
  1. XIGDUO XR [Suspect]
     Active Substance: DAPAGLIFLOZIN PROPANEDIOL\METFORMIN HYDROCHLORIDE
     Indication: DIABETES MELLITUS
     Dosage: 5/1000 MG  TWO TIMES A DAY
     Route: 048
     Dates: start: 20161229, end: 20171005
  2. GLIPIZIDE. [Concomitant]
     Active Substance: GLIPIZIDE
  3. ADALAT [Concomitant]
     Active Substance: NIFEDIPINE
     Indication: HYPERTENSION
  4. COVERSYL [Concomitant]
     Active Substance: PERINDOPRIL
     Indication: HYPERTENSION
  5. LIPITOR [Concomitant]
     Active Substance: ATORVASTATIN CALCIUM
  6. XIGDUO XR [Suspect]
     Active Substance: DAPAGLIFLOZIN PROPANEDIOL\METFORMIN HYDROCHLORIDE
     Indication: OBESITY
     Dosage: 5/1000 MG  TWO TIMES A DAY
     Route: 048
     Dates: start: 20161229, end: 20171005

REACTIONS (4)
  - Gangrene [Recovered/Resolved]
  - Leg amputation [Unknown]
  - Sepsis [Unknown]
  - Peripheral ischaemia [Unknown]

NARRATIVE: CASE EVENT DATE: 20171001
